FAERS Safety Report 25411190 (Version 1)
Quarter: 2025Q2

REPORT INFORMATION
  Report Type: Spontaneous
  Country: IT (occurrence: IT)
  Receive Date: 20250609
  Receipt Date: 20250609
  Transmission Date: 20250716
  Serious: Yes (Hospitalization, Other)
  Sender: NOVITIUM PHARMA
  Company Number: IT-NOVITIUMPHARMA-2025ITNVP01323

PATIENT
  Age: 22 Year
  Sex: Male
  Weight: 81 kg

DRUGS (3)
  1. ALPRAZOLAM [Suspect]
     Active Substance: ALPRAZOLAM
     Indication: Psychotic disorder
  2. PAROXETINE [Suspect]
     Active Substance: PAROXETINE
     Indication: Psychotic disorder
  3. LITHIUM CARBONATE [Concomitant]
     Active Substance: LITHIUM CARBONATE

REACTIONS (1)
  - Serotonin syndrome [Unknown]
